FAERS Safety Report 6087671-1 (Version None)
Quarter: 2009Q1

REPORT INFORMATION
  Report Type: 
  Country: None (occurrence: None)
  Receive Date: 20090223
  Receipt Date: 20090210
  Transmission Date: 20090719
  Serious: Yes (Life-Threatening)
  Sender: FDA-Public Use
  Company Number: NL-TEVA-185461ISR

PATIENT
  Sex: Female
  Weight: 62 kg

DRUGS (3)
  1. PROPRANOLOL [Suspect]
     Dates: start: 20081207, end: 20081208
  2. PROMETHAZINE [Interacting]
     Indication: ANXIETY
     Dates: start: 20081206, end: 20081208
  3. RISPERIDONE [Concomitant]
     Dates: start: 20050101

REACTIONS (4)
  - BRADYCARDIA [None]
  - HYPOTENSION [None]
  - POTENTIATING DRUG INTERACTION [None]
  - RESPIRATORY DEPRESSION [None]
